FAERS Safety Report 4679759-4 (Version None)
Quarter: 2005Q2

REPORT INFORMATION
  Report Type: 
  Country: None (occurrence: None)
  Receive Date: 20050531
  Receipt Date: 20050525
  Transmission Date: 20051028
  Serious: Yes (Death)
  Sender: FDA-Public Use
  Company Number: 20-862-05-00014

PATIENT
  Sex: Male

DRUGS (1)
  1. HECTOROL (DOXERCALCIFEROL) CAPSULES 2.5 MCG [Suspect]
     Indication: HYPERPARATHYROIDISM SECONDARY
     Dosage: 2.5 MCG, ORAL
     Route: 048

REACTIONS (1)
  - PANCREATIC CARCINOMA [None]
